FAERS Safety Report 20040299 (Version 1)
Quarter: 2021Q4

REPORT INFORMATION
  Report Type: Spontaneous
  Country: US (occurrence: US)
  Receive Date: 20211106
  Receipt Date: 20211106
  Transmission Date: 20220304
  Serious: Yes (Other)
  Sender: FDA-Public Use
  Company Number: US-JNJFOC-20211054674

PATIENT
  Sex: Male

DRUGS (12)
  1. APALUTAMIDE [Suspect]
     Active Substance: APALUTAMIDE
     Indication: Product used for unknown indication
     Route: 048
     Dates: start: 20180522, end: 202005
  2. DOCETAXEL [Concomitant]
     Active Substance: DOCETAXEL
     Indication: Product used for unknown indication
     Route: 065
     Dates: start: 20170131
  3. DOCETAXEL [Concomitant]
     Active Substance: DOCETAXEL
     Dosage: C2D1
     Route: 065
     Dates: start: 20170221
  4. DOCETAXEL [Concomitant]
     Active Substance: DOCETAXEL
     Dosage: C3D1
     Route: 065
     Dates: start: 20170314
  5. DOCETAXEL [Concomitant]
     Active Substance: DOCETAXEL
     Dosage: C4D1
     Route: 065
     Dates: start: 20170404
  6. DOCETAXEL [Concomitant]
     Active Substance: DOCETAXEL
     Dosage: C5D1
     Route: 065
     Dates: start: 20170425
  7. DOCETAXEL [Concomitant]
     Active Substance: DOCETAXEL
     Dosage: C6D1
     Route: 065
     Dates: start: 20170516
  8. DOCETAXEL [Concomitant]
     Active Substance: DOCETAXEL
     Route: 065
     Dates: start: 20210524
  9. LUPRON [Concomitant]
     Active Substance: LEUPROLIDE ACETATE
     Indication: Product used for unknown indication
     Route: 065
     Dates: start: 20161227
  10. LUPRON [Concomitant]
     Active Substance: LEUPROLIDE ACETATE
     Route: 065
     Dates: start: 20170124, end: 202104
  11. RELUGOLIX [Concomitant]
     Active Substance: RELUGOLIX
     Indication: Product used for unknown indication
     Route: 065
  12. RELUGOLIX [Concomitant]
     Active Substance: RELUGOLIX
     Route: 065
     Dates: start: 20210408

REACTIONS (4)
  - Malignant neoplasm progression [Unknown]
  - Palmar-plantar erythrodysaesthesia syndrome [Unknown]
  - Oesophagitis [Unknown]
  - Pain [Unknown]
